FAERS Safety Report 11416151 (Version 1)
Quarter: 2015Q3

REPORT INFORMATION
  Report Type: Spontaneous
  Country: US (occurrence: US)
  Receive Date: 20150825
  Receipt Date: 20150825
  Transmission Date: 20151125
  Serious: No
  Sender: FDA-Public Use
  Company Number: US-TEVA-563602USA

PATIENT
  Age: 85 Year
  Sex: Male
  Weight: 79.36 kg

DRUGS (3)
  1. AMBIEN [Concomitant]
     Active Substance: ZOLPIDEM TARTRATE
  2. FEXOFENADINE [Suspect]
     Active Substance: FEXOFENADINE\FEXOFENADINE HYDROCHLORIDE
     Indication: RHINORRHOEA
     Dosage: 180 MILLIGRAM DAILY;
     Route: 048
     Dates: start: 201505
  3. TUSSIN [Concomitant]
     Active Substance: GUAIFENESIN
     Dates: start: 201505

REACTIONS (3)
  - Drug ineffective [Unknown]
  - Drug administered to patient of inappropriate age [Unknown]
  - Expired product administered [Unknown]

NARRATIVE: CASE EVENT DATE: 201505
